FAERS Safety Report 10544067 (Version 1)
Quarter: 2014Q4

REPORT INFORMATION
  Report Type: Report from Study
  Country: BR (occurrence: BR)
  Receive Date: 20141027
  Receipt Date: 20141027
  Transmission Date: 20150529
  Serious: Yes (Other)
  Sender: FDA-Public Use
  Company Number: BR-BAXTER-2014BAX064262

PATIENT

DRUGS (4)
  1. DEXTROSE. [Suspect]
     Active Substance: DEXTROSE
     Indication: ARTERIOGRAM CORONARY
     Route: 040
  2. CLORETO DE S?DIO - BAXTER [Suspect]
     Active Substance: SODIUM CHLORIDE
     Indication: PRODUCT USED FOR UNKNOWN INDICATION
     Dosage: 1 ML/KG/HR
     Route: 042
  3. N-ACETYLCYSTEINE [Suspect]
     Active Substance: ACETYLCYSTEINE
     Indication: ARTERIOGRAM CORONARY
     Route: 042
  4. IOXITALAMATE [Suspect]
     Active Substance: IOTHALAMIC ACID
     Indication: ARTERIOGRAM CORONARY
     Route: 065

REACTIONS (1)
  - Acute kidney injury [Recovered/Resolved]
